FAERS Safety Report 24663920 (Version 1)
Quarter: 2024Q4

REPORT INFORMATION
  Report Type: Spontaneous
  Country: CN (occurrence: CN)
  Receive Date: 20241126
  Receipt Date: 20241126
  Transmission Date: 20250115
  Serious: Yes (Hospitalization, Other)
  Sender: RANBAXY
  Company Number: CN-SUN PHARMACEUTICAL INDUSTRIES LTD-2024R1-480663

PATIENT
  Age: 37 Year
  Sex: Female
  Weight: 65 kg

DRUGS (6)
  1. BUPIVACAINE [Suspect]
     Active Substance: BUPIVACAINE
     Indication: Spinal anaesthesia
     Dosage: 10 MILLIGRAM
     Route: 037
  2. FUROSEMIDE [Suspect]
     Active Substance: FUROSEMIDE
     Indication: Product used for unknown indication
     Dosage: UNK
     Route: 065
  3. MORPHINE [Suspect]
     Active Substance: MORPHINE
     Indication: Spinal anaesthesia
     Dosage: 70 MICROGRAM
     Route: 037
  4. PROPOFOL [Suspect]
     Active Substance: PROPOFOL
     Indication: Spinal anaesthesia
     Dosage: UNK
     Route: 065
  5. ROPIVACAINE [Suspect]
     Active Substance: ROPIVACAINE
     Indication: Product used for unknown indication
     Dosage: UNK
     Route: 065
  6. SUFENTANIL [Suspect]
     Active Substance: SUFENTANIL
     Indication: Analgesic therapy
     Dosage: 2 MICROGRAM
     Route: 042

REACTIONS (5)
  - Exposure during pregnancy [Unknown]
  - Live birth [Unknown]
  - Pneumonia [Unknown]
  - Somnolence [Unknown]
  - Loss of consciousness [Unknown]
